FAERS Safety Report 23266679 (Version 1)
Quarter: 2023Q4

REPORT INFORMATION
  Report Type: Spontaneous
  Country: JP (occurrence: JP)
  Receive Date: 20231206
  Receipt Date: 20231206
  Transmission Date: 20240110
  Serious: Yes (Hospitalization)
  Sender: FDA-Public Use
  Company Number: JP-MYLANLABS-2023M1128696

PATIENT
  Age: 45 Year
  Sex: Female

DRUGS (22)
  1. TEICOPLANIN [Suspect]
     Active Substance: TEICOPLANIN
     Indication: Stenotrophomonas infection
     Dosage: UNK
     Route: 065
  2. LEVOFLOXACIN [Suspect]
     Active Substance: LEVOFLOXACIN
     Indication: Stenotrophomonas infection
     Route: 042
  3. CYTARABINE [Concomitant]
     Active Substance: CYTARABINE
     Indication: Bone marrow conditioning regimen
     Dosage: UNK
     Route: 065
  4. CYTARABINE [Concomitant]
     Active Substance: CYTARABINE
     Indication: Immunosuppressant drug therapy
  5. CYCLOPHOSPHAMIDE [Concomitant]
     Active Substance: CYCLOPHOSPHAMIDE
     Indication: Bone marrow conditioning regimen
     Dosage: UNK
     Route: 065
  6. CYCLOPHOSPHAMIDE [Concomitant]
     Active Substance: CYCLOPHOSPHAMIDE
     Indication: Immunosuppressant drug therapy
  7. HYDROCORTISONE [Concomitant]
     Active Substance: HYDROCORTISONE
     Indication: Hormone replacement therapy
     Dosage: 20 MILLIGRAM, QD
     Route: 065
  8. HYDROCORTISONE [Concomitant]
     Active Substance: HYDROCORTISONE
     Indication: Immunosuppressant drug therapy
     Dosage: 50 MILLIGRAM, QD
     Route: 065
  9. HYDROCORTISONE [Concomitant]
     Active Substance: HYDROCORTISONE
     Indication: Adrenal insufficiency
  10. CYCLOSPORINE [Concomitant]
     Active Substance: CYCLOSPORINE
     Indication: Prophylaxis against graft versus host disease
     Route: 042
  11. CYCLOSPORINE [Concomitant]
     Active Substance: CYCLOSPORINE
     Indication: Immunosuppressant drug therapy
  12. METHOTREXATE [Concomitant]
     Active Substance: METHOTREXATE
     Indication: Prophylaxis against graft versus host disease
     Dosage: SHORT TERM
     Route: 065
  13. METHOTREXATE [Concomitant]
     Active Substance: METHOTREXATE
     Indication: Immunosuppressant drug therapy
  14. FLUCONAZOLE [Suspect]
     Active Substance: FLUCONAZOLE
     Indication: Antifungal treatment
     Route: 065
  15. FLUCONAZOLE [Suspect]
     Active Substance: FLUCONAZOLE
     Indication: Evidence based treatment
  16. CEFEPIME [Suspect]
     Active Substance: CEFEPIME HYDROCHLORIDE
     Indication: Stenotrophomonas infection
     Dosage: UNK
     Route: 042
  17. MEROPENEM [Suspect]
     Active Substance: MEROPENEM
     Indication: Stenotrophomonas infection
     Dosage: UNK
     Route: 065
  18. MICAFUNGIN [Suspect]
     Active Substance: MICAFUNGIN SODIUM
     Indication: Stenotrophomonas infection
     Route: 065
  19. SULFAMETHOXAZOLE\TRIMETHOPRIM [Suspect]
     Active Substance: SULFAMETHOXAZOLE\TRIMETHOPRIM
     Indication: Stenotrophomonas infection
     Route: 065
  20. AMPHOTERICIN B [Suspect]
     Active Substance: AMPHOTERICIN B
     Indication: Candida infection
     Dosage: UNK
     Route: 065
  21. LEVOTHYROXINE [Concomitant]
     Active Substance: LEVOTHYROXINE
     Indication: Hormone replacement therapy
     Route: 065
  22. VASOPRESSIN [Concomitant]
     Active Substance: VASOPRESSIN
     Indication: Hormone replacement therapy
     Route: 065

REACTIONS (1)
  - Drug ineffective [Unknown]
